FAERS Safety Report 6337831-7 (Version None)
Quarter: 2009Q3

REPORT INFORMATION
  Report Type: 
  Country: None (occurrence: None)
  Receive Date: 20090902
  Receipt Date: 20090831
  Transmission Date: 20100115
  Serious: Yes (Other)
  Sender: FDA-Public Use
  Company Number: A0805207A

PATIENT
  Age: 39 Year
  Sex: Male
  Weight: 97.5 kg

DRUGS (2)
  1. LAMICTAL [Suspect]
     Indication: DRUG USE FOR UNKNOWN INDICATION
     Dosage: 25MG PER DAY
     Route: 048
  2. VALPROIC ACID [Concomitant]
     Indication: DRUG USE FOR UNKNOWN INDICATION
     Route: 065

REACTIONS (8)
  - ARTHRALGIA [None]
  - FATIGUE [None]
  - MOUTH ULCERATION [None]
  - OROPHARYNGEAL PAIN [None]
  - PAIN OF SKIN [None]
  - PYREXIA [None]
  - RASH GENERALISED [None]
  - RASH PRURITIC [None]
